FAERS Safety Report 23510347 (Version 3)
Quarter: 2024Q3

REPORT INFORMATION
  Report Type: Spontaneous
  Country: CA (occurrence: CA)
  Receive Date: 20240211
  Receipt Date: 20240730
  Transmission Date: 20241017
  Serious: Yes (Hospitalization, Other)
  Sender: CELLTRION
  Company Number: CA-CELLTRION INC.-2024CA003249

PATIENT

DRUGS (2)
  1. INFLECTRA [Suspect]
     Active Substance: INFLIXIMAB-DYYB
     Indication: Crohn^s disease
     Dosage: 300 MG,Q 0, 2, 6, THEN EVERY 8 WEEKS
     Route: 042
     Dates: start: 20200205
  2. INFLECTRA [Suspect]
     Active Substance: INFLIXIMAB-DYYB
     Dosage: 400 MG, EVERY 8 WEEKS
     Route: 042
     Dates: start: 20240106

REACTIONS (2)
  - Pancreatitis [Unknown]
  - Drug level above therapeutic [Unknown]

NARRATIVE: CASE EVENT DATE: 20231202
